FAERS Safety Report 20154319 (Version 1)
Quarter: 2021Q4

REPORT INFORMATION
  Report Type: Spontaneous
  Country: JP (occurrence: JP)
  Receive Date: 20211207
  Receipt Date: 20211207
  Transmission Date: 20220304
  Serious: Yes (Other)
  Sender: FDA-Public Use
  Company Number: JP-ORPHANEU-2021005101

PATIENT

DRUGS (8)
  1. COSMEGEN [Suspect]
     Active Substance: DACTINOMYCIN
     Indication: Teratoma
     Dosage: UNK
  2. COSMEGEN [Suspect]
     Active Substance: DACTINOMYCIN
     Indication: Off label use
  3. ETOPOSIDE [Concomitant]
     Active Substance: ETOPOSIDE
     Indication: Teratoma
  4. BLEOMYCIN [Concomitant]
     Active Substance: BLEOMYCIN SULFATE
     Indication: Teratoma
  5. VINCRISTINE [Concomitant]
     Active Substance: VINCRISTINE
     Indication: Teratoma
  6. CYCLOPHOSPHAMIDE [Concomitant]
     Active Substance: CYCLOPHOSPHAMIDE
     Indication: Teratoma
  7. TOPOTECAN [Concomitant]
     Active Substance: TOPOTECAN HYDROCHLORIDE
     Indication: Teratoma
  8. PLATINUM [Concomitant]
     Active Substance: PLATINUM
     Indication: Teratoma

REACTIONS (4)
  - Cholangiocarcinoma [Unknown]
  - Product use in unapproved indication [Recovered/Resolved]
  - Off label use [Recovered/Resolved]
  - Drug ineffective for unapproved indication [Recovered/Resolved]
